FAERS Safety Report 9712287 (Version 1)
Quarter: 2013Q4

REPORT INFORMATION
  Report Type: Spontaneous
  Country: US (occurrence: US)
  Receive Date: 20131126
  Receipt Date: 20131126
  Transmission Date: 20140711
  Serious: No
  Sender: FDA-Public Use
  Company Number: US-BRISTOL-MYERS SQUIBB COMPANY-18857714

PATIENT
  Age: 51 Year
  Sex: Male
  Weight: 122.45 kg

DRUGS (4)
  1. BYDUREON [Suspect]
     Indication: TYPE 1 DIABETES MELLITUS
     Route: 058
  2. NOVOLOG [Concomitant]
  3. INSULIN [Concomitant]
  4. HUMULIN N [Concomitant]

REACTIONS (1)
  - Weight decreased [Unknown]
